FAERS Safety Report 6166568-2 (Version None)
Quarter: 2009Q2

REPORT INFORMATION
  Report Type: 
  Country: None (occurrence: None)
  Receive Date: 20090424
  Receipt Date: 20090416
  Transmission Date: 20091009
  Serious: Yes (Hospitalization, Other)
  Sender: FDA-Public Use
  Company Number: NL-BAYER-200911847GPV

PATIENT
  Age: 54 Year
  Sex: Female

DRUGS (10)
  1. NEXAVAR [Suspect]
     Indication: METASTATIC RENAL CELL CARCINOMA
     Dosage: TOTAL DAILY DOSE: 800 MG  UNIT DOSE: 200 MG
     Route: 048
     Dates: start: 20090110, end: 20090130
  2. NEXAVAR [Suspect]
     Dosage: TOTAL DAILY DOSE: 400 MG  UNIT DOSE: 200 MG
     Route: 048
     Dates: start: 20090130
  3. NEXIUM [Concomitant]
     Indication: ABDOMINAL DISCOMFORT
     Route: 048
  4. ACETYLSALICYLIC ACID [Concomitant]
     Indication: PERIPHERAL ARTERIAL OCCLUSIVE DISEASE
     Route: 048
  5. NITROFURANTOIN [Concomitant]
     Indication: CYSTITIS
     Route: 048
  6. OXYCONTIN [Concomitant]
     Indication: PAIN MANAGEMENT
     Dosage: TOTAL DAILY DOSE: 40 MG  UNIT DOSE: 20 MG
     Route: 048
  7. OXYNORM [Concomitant]
     Indication: PAIN MANAGEMENT
     Dosage: TOTAL DAILY DOSE: 5 MG
     Route: 048
  8. PARACETAMOL [Concomitant]
     Indication: PAIN MANAGEMENT
     Dosage: 2-4 TIMES A DAY 1000 MG
  9. LORAZEPAM [Concomitant]
     Indication: SEDATION
     Route: 048
  10. FUROSEMIDE [Concomitant]
     Indication: OEDEMA PERIPHERAL
     Route: 048
     Dates: end: 20090223

REACTIONS (8)
  - ANOREXIA [None]
  - CONSTIPATION [None]
  - MYALGIA [None]
  - OEDEMA PERIPHERAL [None]
  - PNEUMONIA [None]
  - PULMONARY OEDEMA [None]
  - RASH [None]
  - STOMATITIS [None]
